FAERS Safety Report 19364085 (Version 1)
Quarter: 2021Q2

REPORT INFORMATION
  Report Type: Spontaneous
  Country: US (occurrence: US)
  Receive Date: 20210602
  Receipt Date: 20210602
  Transmission Date: 20210717
  Serious: No
  Sender: FDA-Public Use
  Company Number: None

PATIENT
  Age: 57 Year
  Sex: Female

DRUGS (1)
  1. CABENUVA [Suspect]
     Active Substance: CABOTEGRAVIR\RILPIVIRINE
     Indication: HIV INFECTION

REACTIONS (3)
  - Dizziness [None]
  - Dyspnoea [None]
  - Cardiac flutter [None]

NARRATIVE: CASE EVENT DATE: 20210602
